FAERS Safety Report 9132733 (Version 1)
Quarter: 2013Q1

REPORT INFORMATION
  Report Type: Spontaneous
  Country: US (occurrence: US)
  Receive Date: 20130301
  Receipt Date: 20130301
  Transmission Date: 20140127
  Serious: Yes (Other)
  Sender: FDA-Public Use
  Company Number: US-PFIZER INC-2013071419

PATIENT
  Age: 52 Year
  Sex: Male
  Weight: 72.11 kg

DRUGS (1)
  1. ZOLOFT [Suspect]
     Indication: DEPRESSION
     Dosage: 50 MG, 1X/DAY
     Route: 048
     Dates: start: 20130117, end: 201302

REACTIONS (12)
  - Serotonin syndrome [Unknown]
  - Palpitations [Unknown]
  - Blood pressure increased [Unknown]
  - Mania [Not Recovered/Not Resolved]
  - Erectile dysfunction [Not Recovered/Not Resolved]
  - Communication disorder [Unknown]
  - Withdrawal syndrome [Not Recovered/Not Resolved]
  - Insomnia [Not Recovered/Not Resolved]
  - Decreased appetite [Not Recovered/Not Resolved]
  - Logorrhoea [Not Recovered/Not Resolved]
  - Malaise [Unknown]
  - Weight decreased [Unknown]
